FAERS Safety Report 17650852 (Version 1)
Quarter: 2020Q2

REPORT INFORMATION
  Report Type: Spontaneous
  Country: ES (occurrence: ES)
  Receive Date: 20200408
  Receipt Date: 20200408
  Transmission Date: 20200713
  Serious: Yes (Hospitalization)
  Sender: FDA-Public Use
  Company Number: ES-ALSI-202000105

PATIENT
  Sex: Male

DRUGS (2)
  1. AIR, MEDICINAL [Suspect]
     Active Substance: NITROGEN\OXYGEN
     Indication: MEDICATION ERROR
     Route: 055
  2. OXYGEN. [Suspect]
     Active Substance: OXYGEN

REACTIONS (3)
  - Wrong product administered [None]
  - Medication error [Recovered/Resolved]
  - Oxygen saturation decreased [Recovered/Resolved]
